FAERS Safety Report 5926880-6 (Version None)
Quarter: 2008Q4

REPORT INFORMATION
  Report Type: 
  Country: None (occurrence: None)
  Receive Date: 20081022
  Receipt Date: 20081015
  Transmission Date: 20090506
  Serious: Yes (Other)
  Sender: FDA-Public Use
  Company Number: CZ-SANOFI-SYNTHELABO-A01200812754

PATIENT
  Age: 23 Year
  Sex: Male
  Weight: 103 kg

DRUGS (3)
  1. HYDROCHLOROTHIAZIDE [Suspect]
     Indication: HYPERTENSION
     Route: 065
  2. ENALAPRIL MALEATE [Suspect]
     Indication: HYPERTENSION
     Dosage: 10 MG
     Route: 065
  3. BETAXOLOL [Suspect]
     Indication: HYPERTENSION
     Route: 065

REACTIONS (2)
  - EATING DISORDER [None]
  - WEIGHT DECREASED [None]
